FAERS Safety Report 17592728 (Version 1)
Quarter: 2020Q1

REPORT INFORMATION
  Report Type: Report from Study
  Country: AU (occurrence: AU)
  Receive Date: 20200327
  Receipt Date: 20200327
  Transmission Date: 20200409
  Serious: Yes (Death)
  Sender: FDA-Public Use
  Company Number: AU-ASTRAZENECA-2020SE43321

PATIENT
  Sex: Female
  Weight: 77 kg

DRUGS (1)
  1. DURVALUMAB. [Suspect]
     Active Substance: DURVALUMAB
     Route: 042

REACTIONS (1)
  - Death [Fatal]
